FAERS Safety Report 5194699-2 (Version None)
Quarter: 2006Q4

REPORT INFORMATION
  Report Type: 
  Country: None (occurrence: None)
  Receive Date: 20061222
  Receipt Date: 20061222
  Transmission Date: 20070319
  Serious: No
  Sender: FDA-Public Use
  Company Number: None

PATIENT
  Age: 65 Year
  Sex: Male
  Weight: 86.1834 kg

DRUGS (1)
  1. LUNESTA [Suspect]
     Dosage: 3 MG ONCE DAILY PO
     Route: 048
     Dates: start: 20061205, end: 20061216

REACTIONS (1)
  - DYSGEUSIA [None]
